FAERS Safety Report 11143483 (Version 1)
Quarter: 2015Q2

REPORT INFORMATION
  Report Type: Spontaneous
  Country: US (occurrence: None)
  Receive Date: 20150527
  Receipt Date: 20150527
  Transmission Date: 20150821
  Serious: No
  Sender: FDA-Public Use
  Company Number: None

PATIENT
  Age: 35 Year
  Sex: Female

DRUGS (2)
  1. LETROZOLE. [Suspect]
     Active Substance: LETROZOLE
     Indication: BREAST CANCER
     Dosage: BY MOUTH
     Dates: start: 20150515
  2. IBRANCE [Suspect]
     Active Substance: PALBOCICLIB
     Indication: BREAST CANCER
     Dosage: BY MOUTH
     Dates: start: 20150515

REACTIONS (1)
  - Blood pressure increased [None]

NARRATIVE: CASE EVENT DATE: 20150515
